FAERS Safety Report 13377759 (Version 2)
Quarter: 2017Q2

REPORT INFORMATION
  Report Type: Spontaneous
  Country: FR (occurrence: FR)
  Receive Date: 20170328
  Receipt Date: 20170404
  Transmission Date: 20170830
  Serious: Yes (Congenital Anomaly)
  Sender: FDA-Public Use
  Company Number: FR-009507513-1703FRA012177

PATIENT
  Sex: Female
  Weight: 2.9 kg

DRUGS (5)
  1. NASONEX [Suspect]
     Active Substance: MOMETASONE FUROATE
     Indication: PRODUCT USED FOR UNKNOWN INDICATION
     Dosage: 1 DF, QD
     Route: 064
  2. CETIRIZINE HYDROCHLORIDE. [Suspect]
     Active Substance: CETIRIZINE HYDROCHLORIDE
     Dosage: 5 MG, QD
     Route: 064
  3. ALLERGODIL [Suspect]
     Active Substance: AZELASTINE
     Dosage: 1 GTT, QD
     Route: 064
  4. GESTARELLA [Suspect]
     Active Substance: ETHINYL ESTRADIOL\GESTODENE
     Dosage: 1 DF, QD
  5. TIMOFEROL [Concomitant]
     Active Substance: ASCORBIC ACID\FERROUS SULFATE
     Dosage: 1 DF, QD
     Route: 064

REACTIONS (2)
  - Gastroschisis [Recovered/Resolved with Sequelae]
  - Maternal drugs affecting foetus [None]

NARRATIVE: CASE EVENT DATE: 2016
